FAERS Safety Report 9277899 (Version 1)
Quarter: 2013Q2

REPORT INFORMATION
  Report Type: Spontaneous
  Country: US (occurrence: None)
  Receive Date: 20130503
  Receipt Date: 20130503
  Transmission Date: 20140414
  Serious: Yes (Other)
  Sender: FDA-Public Use
  Company Number: None

PATIENT
  Age: 89 Year
  Sex: Female
  Weight: 66.72 kg

DRUGS (12)
  1. APIXABAN [Suspect]
     Indication: ATRIAL FLUTTER
  2. AMLODIPINE [Concomitant]
  3. ASA [Concomitant]
  4. AZITHROMYCIN [Concomitant]
  5. VIT D 50,000 [Concomitant]
  6. FERROUS SULFATE [Concomitant]
  7. LISINOPRIL [Concomitant]
  8. METOPROLOL SUCCINATE [Concomitant]
  9. MULTIVITAMIN [Concomitant]
  10. OMEPRAZOLE [Concomitant]
  11. SIMVASTATIN [Concomitant]
  12. SITAGLIPTIN [Concomitant]

REACTIONS (1)
  - Melaena [None]
